FAERS Safety Report 4977006-7 (Version None)
Quarter: 2006Q2

REPORT INFORMATION
  Report Type: 
  Country: None (occurrence: None)
  Receive Date: 20060412
  Receipt Date: 20060331
  Transmission Date: 20061013
  Serious: Yes (Hospitalization)
  Sender: FDA-Public Use
  Company Number: MEDI-0004218

PATIENT
  Age: 56 Year
  Sex: Male
  Weight: 69.8539 kg

DRUGS (3)
  1. ETHYOL [Suspect]
     Indication: CHEMOTHERAPY
     Dosage: 500 MG, 1 IN 1 D, SUBCUTANEOUS
     Route: 058
     Dates: start: 20060104, end: 20060216
  2. ETHYOL [Suspect]
     Indication: RADIOTHERAPY
     Dosage: 500 MG, 1 IN 1 D, SUBCUTANEOUS
     Route: 058
     Dates: start: 20060104, end: 20060216
  3. CISPLATIN [Concomitant]

REACTIONS (17)
  - AGITATION [None]
  - ANOREXIA [None]
  - CONFUSIONAL STATE [None]
  - DEHYDRATION [None]
  - DELIRIUM [None]
  - DYSPHAGIA [None]
  - FATIGUE [None]
  - INJECTION SITE ERYTHEMA [None]
  - ODYNOPHAGIA [None]
  - PANCYTOPENIA [None]
  - PHARYNGOLARYNGEAL PAIN [None]
  - RADIATION MUCOSITIS [None]
  - RASH [None]
  - SKIN EXFOLIATION [None]
  - SKIN INFLAMMATION [None]
  - STAPHYLOCOCCAL BACTERAEMIA [None]
  - STOMATITIS RADIATION [None]
